APPROVED DRUG PRODUCT: LYMPHAZURIN
Active Ingredient: ISOSULFAN BLUE
Strength: 50MG/5ML (10MG/ML) **Federal Register determination that product was not discontinued or withdrawn for safety or effectiveness reasons**
Dosage Form/Route: SOLUTION;SUBCUTANEOUS
Application: N018310 | Product #001
Applicant: COVIDIEN
Approved: Approved Prior to Jan 1, 1982 | RLD: Yes | RS: No | Type: DISCN